FAERS Safety Report 19969428 (Version 1)
Quarter: 2021Q4

REPORT INFORMATION
  Report Type: Spontaneous
  Country: TN (occurrence: TN)
  Receive Date: 20211019
  Receipt Date: 20211019
  Transmission Date: 20220303
  Serious: Yes (Hospitalization, Other)
  Sender: FDA-Public Use
  Company Number: TN-ARBOR PHARMACEUTICALS, LLC-TN-2021ARB001204

PATIENT
  Age: 72 Year
  Sex: Female

DRUGS (1)
  1. GABAPENTIN ENACARBIL [Suspect]
     Active Substance: GABAPENTIN ENACARBIL
     Indication: Peripheral sensorimotor neuropathy
     Dosage: 150 MG, BID

REACTIONS (2)
  - Myoclonus [Recovered/Resolved]
  - Mental impairment [Recovered/Resolved]
